FAERS Safety Report 18264251 (Version 1)
Quarter: 2020Q3

REPORT INFORMATION
  Report Type: Spontaneous
  Country: PL (occurrence: PL)
  Receive Date: 20200914
  Receipt Date: 20200914
  Transmission Date: 20201103
  Serious: Yes (Other)
  Sender: FDA-Public Use
  Company Number: PL-BAUSCH-BL-2020-025848

PATIENT
  Age: 57 Year
  Sex: Male
  Weight: 112 kg

DRUGS (8)
  1. HYDROXYZINE [Concomitant]
     Active Substance: HYDROXYZINE HYDROCHLORIDE
     Indication: PRODUCT USED FOR UNKNOWN INDICATION
  2. ESSENTIALE FORTE [Concomitant]
     Indication: PRODUCT USED FOR UNKNOWN INDICATION
  3. RELANIUM [Concomitant]
     Indication: PRODUCT USED FOR UNKNOWN INDICATION
  4. DEXAVEN [Suspect]
     Active Substance: DEXAMETHASONE
     Indication: SPINAL PAIN
     Route: 030
     Dates: start: 20200224
  5. BETO 50 [Concomitant]
     Indication: PRODUCT USED FOR UNKNOWN INDICATION
  6. MESOPRAL [Concomitant]
     Indication: PRODUCT USED FOR UNKNOWN INDICATION
  7. NO?SPA [Concomitant]
     Active Substance: DROTAVERINE HYDROCHLORIDE
     Indication: PRODUCT USED FOR UNKNOWN INDICATION
  8. TELMISARTAN EGIS [Concomitant]
     Indication: PRODUCT USED FOR UNKNOWN INDICATION

REACTIONS (5)
  - Blood pressure abnormal [Unknown]
  - Chest discomfort [Unknown]
  - Heart rate abnormal [Unknown]
  - Chest pain [Unknown]
  - Headache [Unknown]

NARRATIVE: CASE EVENT DATE: 20200224
